FAERS Safety Report 5523337-1 (Version None)
Quarter: 2007Q4

REPORT INFORMATION
  Report Type: 
  Country: None (occurrence: None)
  Receive Date: 20071121
  Receipt Date: 20071114
  Transmission Date: 20080405
  Serious: Yes (Hospitalization)
  Sender: FDA-Public Use
  Company Number: B0334613A

PATIENT
  Age: 58 Year
  Sex: Female

DRUGS (3)
  1. ZINNAT INJECTABLE [Suspect]
     Indication: PROPHYLAXIS
     Route: 042
     Dates: start: 20040311, end: 20040311
  2. ULTIVA [Concomitant]
     Route: 042
     Dates: start: 20040311, end: 20040311
  3. DIPRIVAN [Concomitant]
     Route: 042
     Dates: start: 20040311, end: 20040311

REACTIONS (5)
  - GENERALISED ERYTHEMA [None]
  - HYPOTENSION [None]
  - PILOERECTION [None]
  - RESPIRATORY DEPTH DECREASED [None]
  - TACHYCARDIA [None]
